FAERS Safety Report 7310366-0 (Version None)
Quarter: 2011Q1

REPORT INFORMATION
  Report Type: 
  Country: None (occurrence: None)
  Receive Date: 20110214
  Receipt Date: 20110201
  Transmission Date: 20110831
  Serious: Yes (Hospitalization, Other)
  Sender: FDA-Public Use
  Company Number: DSJ-2011-02236

PATIENT
  Age: 67 Year
  Sex: Female

DRUGS (5)
  1. RANITIDINE [Concomitant]
  2. FENOFIBRATE [Concomitant]
  3. BENICAR [Suspect]
     Indication: HYPERTENSION
     Dosage: 40 MG (40 MG, 1 IN 1 D), PER ORAL
     Route: 048
     Dates: start: 20040101
  4. FUROSEMIDE [Concomitant]
  5. TICLOPIDINE (TICLOPIDINE HYDROCHLORIDE) [Concomitant]

REACTIONS (3)
  - HAEMODIALYSIS [None]
  - RENAL DISORDER [None]
  - HEART VALVE REPLACEMENT [None]
